FAERS Safety Report 4649527-8 (Version None)
Quarter: 2005Q2

REPORT INFORMATION
  Report Type: 
  Country: None (occurrence: None)
  Receive Date: 20050502
  Receipt Date: 20050422
  Transmission Date: 20051028
  Serious: Yes (Hospitalization)
  Sender: FDA-Public Use
  Company Number: PHEH2005US04794

PATIENT
  Age: 70 Year
  Sex: Male

DRUGS (2)
  1. AREDIA [Suspect]
     Dosage: UNK, ONCE/SINGLE
  2. ZOMETA [Suspect]
     Dosage: 4 MG, ONCE/SINGLE

REACTIONS (1)
  - CELLULITIS ORBITAL [None]
